FAERS Safety Report 13906441 (Version 1)
Quarter: 2017Q3

REPORT INFORMATION
  Report Type: Spontaneous
  Country: US (occurrence: US)
  Receive Date: 20170825
  Receipt Date: 20170825
  Transmission Date: 20171127
  Serious: Yes (Death, Hospitalization)
  Sender: FDA-Public Use
  Company Number: PHHY2017US123944

PATIENT
  Age: 58 Year
  Sex: Female

DRUGS (1)
  1. PACLITAXEL. [Suspect]
     Active Substance: PACLITAXEL
     Indication: INFLAMMATORY CARCINOMA OF THE BREAST
     Dosage: 175 MG/M2, CYCLIC
     Route: 065

REACTIONS (10)
  - Transaminases increased [Fatal]
  - Hyperbilirubinaemia [Fatal]
  - Vomiting [Fatal]
  - Chromaturia [Fatal]
  - Nausea [Fatal]
  - Hepatitis B reactivation [Fatal]
  - Abdominal pain [Fatal]
  - Coagulopathy [Fatal]
  - Acute hepatic failure [Fatal]
  - Hepatic encephalopathy [Fatal]
